FAERS Safety Report 17267652 (Version 2)
Quarter: 2021Q3

REPORT INFORMATION
  Report Type: Spontaneous
  Country: US (occurrence: US)
  Receive Date: 20200114
  Receipt Date: 20210913
  Transmission Date: 20211014
  Serious: No
  Sender: FDA-Public Use
  Company Number: US-PFIZER INC-2020014660

PATIENT
  Age: 74 Year
  Sex: Male

DRUGS (1)
  1. LYRICA CR [Suspect]
     Active Substance: PREGABALIN
     Indication: DIABETIC NEUROPATHY
     Dosage: 225 MG, 3X/DAY (1 TABLET 3 TIMES A DAY)
     Route: 048

REACTIONS (7)
  - Overdose [Unknown]
  - Therapeutic product effect incomplete [Unknown]
  - Pain [Unknown]
  - Hypoaesthesia [Unknown]
  - Mobility decreased [Unknown]
  - Atrophy [Unknown]
  - Off label use [Unknown]
